FAERS Safety Report 8009014-6 (Version None)
Quarter: 2011Q4

REPORT INFORMATION
  Report Type: 
  Country: None (occurrence: None)
  Receive Date: 20111221
  Receipt Date: 20111212
  Transmission Date: 20120403
  Serious: Yes (Hospitalization, Other)
  Sender: FDA-Public Use
  Company Number: 2011P1014295

PATIENT
  Age: 45 Year
  Sex: Male

DRUGS (6)
  1. ESCITALOPRAM [Concomitant]
  2. LONG-ACTING [Concomitant]
  3. MIRTAZAPINE [Concomitant]
  4. ZOLPIDEM [Suspect]
     Indication: INITIAL INSOMNIA
     Dosage: 15 MG;QD;PO   25 MG;QD;PO
     Route: 048
  5. PROPRANOLOL [Concomitant]
  6. LORAZEPAM [Concomitant]

REACTIONS (4)
  - DELIRIUM [None]
  - WITHDRAWAL SYNDROME [None]
  - BLOOD PRESSURE FLUCTUATION [None]
  - INCORRECT DOSE ADMINISTERED [None]
